FAERS Safety Report 10559895 (Version 1)
Quarter: 2014Q4

REPORT INFORMATION
  Report Type: Spontaneous
  Country: US (occurrence: None)
  Receive Date: 20141031
  Receipt Date: 20141031
  Transmission Date: 20150529
  Serious: Yes (Disabling, Other)
  Sender: FDA-Public Use
  Company Number: None

PATIENT
  Age: 47 Year

DRUGS (1)
  1. KLONOPIN [Suspect]
     Active Substance: CLONAZEPAM
     Indication: INSOMNIA
     Dosage: PRN FROM 1/2 TO 3 PILLS, ONCE DAILY, TAKEN BY MOUTH
     Route: 048

REACTIONS (4)
  - Cognitive disorder [None]
  - Tinnitus [None]
  - Dizziness [None]
  - Insomnia [None]

NARRATIVE: CASE EVENT DATE: 20140313
